FAERS Safety Report 9815363 (Version 4)
Quarter: 2014Q1

REPORT INFORMATION
  Report Type: Report from Study
  Country: GB (occurrence: GB)
  Receive Date: 20140114
  Receipt Date: 20140129
  Transmission Date: 20141002
  Serious: Yes (Death, Hospitalization)
  Sender: FDA-Public Use
  Company Number: GB-ROCHE-1323621

PATIENT
  Age: 62 Year
  Sex: Female

DRUGS (16)
  1. PERTUZUMAB [Suspect]
     Indication: BREAST CANCER METASTATIC
     Dosage: LOADING DOSE
     Route: 042
     Dates: start: 20130910
  2. PERTUZUMAB [Suspect]
     Dosage: MAINTENANCE DOSE, LAST DOSE PRIOR TO EVENT ON 03/DEC/2013 DYSPNOEA?LAST DOSE PRIOR TO EVENT ON 31/DE
     Route: 042
     Dates: end: 20131217
  3. TRASTUZUMAB [Suspect]
     Indication: BREAST CANCER METASTATIC
     Dosage: LOADING DOSE
     Route: 042
     Dates: start: 20130910
  4. TRASTUZUMAB [Suspect]
     Dosage: MAINTAINANCE DOSE, LAST DOSE PRIOR TO EVENT ON 03/DEC/2013 DYSPNOEA?LAST DOSE PRIOR TO EVENT ON 31/D
     Route: 042
     Dates: start: 20131002, end: 20131217
  5. DOCETAXOL [Suspect]
     Indication: BREAST CANCER METASTATIC
     Dosage: DATE OF LAST DOSE PRIOR TO SAE: 31/DEC/2013
     Route: 042
     Dates: start: 20130910, end: 20131217
  6. OXYGEN [Concomitant]
     Route: 065
     Dates: start: 20130814
  7. PREDNISOLONE [Concomitant]
     Route: 065
     Dates: start: 20130904, end: 20131002
  8. PREDNISOLONE [Concomitant]
     Route: 065
     Dates: start: 20131003, end: 20131017
  9. PREDNISOLONE [Concomitant]
     Route: 065
     Dates: start: 20131017, end: 20131031
  10. AMLODIPINE [Concomitant]
     Indication: BLOOD PRESSURE
     Route: 065
     Dates: start: 2010
  11. CALCICHEW D3 FORTE [Concomitant]
     Indication: BONE DISORDER
     Route: 065
     Dates: start: 20130814
  12. PARACETAMOL [Concomitant]
     Route: 065
     Dates: start: 20130814, end: 20130916
  13. ZOTON [Concomitant]
     Route: 065
     Dates: start: 20131015
  14. CO-AMOXICLAV [Concomitant]
     Route: 065
     Dates: start: 20131008, end: 20131014
  15. CHLORPHENAMINE [Concomitant]
     Route: 065
     Dates: start: 20130910, end: 20130910
  16. CHLORPHENAMINE [Concomitant]
     Route: 065
     Dates: start: 20131001, end: 20131001

REACTIONS (2)
  - Death [Fatal]
  - Dyspnoea [Recovered/Resolved]
